FAERS Safety Report 9153602 (Version 2)
Quarter: 2013Q3

REPORT INFORMATION
  Report Type: Spontaneous
  Country: IT (occurrence: IT)
  Receive Date: 20130311
  Receipt Date: 20130711
  Transmission Date: 20140515
  Serious: Yes (Life-Threatening, Hospitalization)
  Sender: FDA-Public Use
  Company Number: PHHY2013IT022146

PATIENT
  Age: 41 Year
  Sex: Male

DRUGS (1)
  1. EXJADE [Suspect]
     Indication: THALASSAEMIA BETA
     Dosage: 500 MG, DAILY
     Route: 048
     Dates: start: 20120705, end: 20130302

REACTIONS (7)
  - Coma [Recovering/Resolving]
  - Depressed level of consciousness [Recovering/Resolving]
  - Hemiplegia [Recovering/Resolving]
  - Haematoma [Recovering/Resolving]
  - Aphasia [Unknown]
  - Device malfunction [Unknown]
  - Cognitive disorder [Unknown]
